FAERS Safety Report 20516166 (Version 1)
Quarter: 2022Q1

REPORT INFORMATION
  Report Type: Spontaneous
  Country: GB (occurrence: GB)
  Receive Date: 20220225
  Receipt Date: 20220225
  Transmission Date: 20220423
  Serious: Yes (Hospitalization)
  Sender: FDA-Public Use
  Company Number: GB-TEVA-2022-GB-2011389

PATIENT
  Age: 53 Year
  Sex: Female

DRUGS (3)
  1. WARFARIN [Suspect]
     Active Substance: WARFARIN
     Indication: Antiphospholipid syndrome
     Route: 065
  2. TEMOCILLIN [Concomitant]
     Active Substance: TEMOCILLIN
     Indication: Pyelonephritis
     Route: 042
  3. GENTAMICIN [Concomitant]
     Active Substance: GENTAMICIN
     Indication: Pyelonephritis
     Route: 042

REACTIONS (2)
  - Adrenal haemorrhage [Recovered/Resolved]
  - Adrenal insufficiency [Recovering/Resolving]
